FAERS Safety Report 23432012 (Version 1)
Quarter: 2024Q1

REPORT INFORMATION
  Report Type: Spontaneous
  Country: RU (occurrence: RU)
  Receive Date: 20240123
  Receipt Date: 20240123
  Transmission Date: 20240409
  Serious: Yes (Other)
  Sender: FDA-Public Use
  Company Number: RU-JNJFOC-20240145160

PATIENT
  Age: 40 Year
  Sex: Male

DRUGS (1)
  1. SIRTURO [Suspect]
     Active Substance: BEDAQUILINE FUMARATE
     Indication: Tuberculosis
     Dosage: LAST DOSE OF DRUG ADMINISTRATION- 26-OCT-2023
     Route: 048
     Dates: start: 20231024

REACTIONS (2)
  - Dizziness [Recovered/Resolved]
  - Pathological doubt [Recovered/Resolved]

NARRATIVE: CASE EVENT DATE: 20231024
